FAERS Safety Report 25126536 (Version 1)
Quarter: 2025Q1

REPORT INFORMATION
  Report Type: Spontaneous
  Country: CA (occurrence: CA)
  Receive Date: 20250327
  Receipt Date: 20250327
  Transmission Date: 20250408
  Serious: Yes (Life-Threatening, Hospitalization)
  Sender: ACCORD
  Company Number: None

PATIENT
  Age: 15 Year
  Sex: Male
  Weight: 79 kg

DRUGS (45)
  1. MYCOPHENOLATE MOFETIL [Suspect]
     Active Substance: MYCOPHENOLATE MOFETIL
     Indication: Prophylaxis against graft versus host disease
  2. SIROLIMUS [Suspect]
     Active Substance: SIROLIMUS
     Indication: Prophylaxis against graft versus host disease
     Route: 048
  3. ACYCLOVIR [Concomitant]
     Active Substance: ACYCLOVIR
  4. PALONOSETRON HYDROCHLORIDE [Concomitant]
     Active Substance: PALONOSETRON HYDROCHLORIDE
  5. ALTEPLASE [Concomitant]
     Active Substance: ALTEPLASE
     Route: 042
  6. AMLODIPINE [Concomitant]
     Active Substance: AMLODIPINE BESYLATE
  7. AZITHROMYCIN [Concomitant]
     Active Substance: AZITHROMYCIN
  8. BUSULFAN [Concomitant]
     Active Substance: BUSULFAN
  9. CALCIUM [Concomitant]
     Active Substance: CALCIUM
  10. CEFTAZIDIME [Concomitant]
     Active Substance: CEFTAZIDIME
  11. CETIRIZINE [Concomitant]
     Active Substance: CETIRIZINE HYDROCHLORIDE
  12. CIPROFLOXACIN [Concomitant]
     Active Substance: CIPROFLOXACIN
  13. CYCLOPHOSPHAMIDE [Concomitant]
     Active Substance: CYCLOPHOSPHAMIDE
  14. DEXMEDETOMIDINE HYDROCHLORIDE [Concomitant]
     Active Substance: DEXMEDETOMIDINE HYDROCHLORIDE
  15. FAMOTIDINE [Concomitant]
     Active Substance: FAMOTIDINE
  16. FLUCONAZOLE [Concomitant]
     Active Substance: FLUCONAZOLE
  17. FLUDARABINE [Concomitant]
     Active Substance: FLUDARABINE PHOSPHATE
  18. FOLIC ACID [Concomitant]
     Active Substance: FOLIC ACID
  19. FOSCARNET SODIUM [Concomitant]
     Active Substance: FOSCARNET SODIUM
     Route: 042
  20. GANCICLOVIR [Concomitant]
     Active Substance: GANCICLOVIR
     Route: 042
  21. LACTULOSE [Concomitant]
     Active Substance: LACTULOSE
     Route: 048
  22. LEVETIRACETAM [Concomitant]
     Active Substance: LEVETIRACETAM
  23. LORAZEPAM [Concomitant]
     Active Substance: LORAZEPAM
  24. CIDOFOVIR [Concomitant]
     Active Substance: CIDOFOVIR
     Route: 042
  25. MEROPENEM [Concomitant]
     Active Substance: MEROPENEM
     Route: 042
  26. MESNA [Concomitant]
     Active Substance: MESNA
  27. METHYLPREDNISOLONE [Concomitant]
     Active Substance: METHYLPREDNISOLONE
  28. METOCLOPRAMIDE [Concomitant]
     Active Substance: METOCLOPRAMIDE
  29. MYCAMINE [Concomitant]
     Active Substance: MICAFUNGIN SODIUM
     Route: 042
  30. NIFEDIPINE [Concomitant]
     Active Substance: NIFEDIPINE
  31. ONDANSETRON [Concomitant]
     Active Substance: ONDANSETRON
  32. PANTOPRAZOLE [Concomitant]
     Active Substance: PANTOPRAZOLE
     Route: 042
  33. PENTAMIDINE ISETHIONATE [Concomitant]
     Active Substance: PENTAMIDINE ISETHIONATE
  34. PHYTONADIONE [Concomitant]
     Active Substance: PHYTONADIONE
  35. PIPERACILLIN AND TAZOBACTAM [Concomitant]
     Active Substance: PIPERACILLIN SODIUM\TAZOBACTAM SODIUM
  36. POLYETHYLENE GLYCOL [Concomitant]
     Active Substance: POLYETHYLENE GLYCOL
  37. PREDNISONE [Concomitant]
     Active Substance: PREDNISONE
  38. LETERMOVIR [Concomitant]
     Active Substance: LETERMOVIR
  39. RITUXIMAB [Concomitant]
     Active Substance: RITUXIMAB
  40. SENNOSIDES [Concomitant]
     Active Substance: SENNOSIDES
  41. TPN [Concomitant]
     Active Substance: AMINO ACIDS\DEXTROSE\ELECTROLYTES NOS\SOYBEAN OIL
  42. TRANEXAMIC ACID [Concomitant]
     Active Substance: TRANEXAMIC ACID
  43. URSODIOL [Concomitant]
     Active Substance: URSODIOL
  44. VALACYCLOVIR HYDROCHLORIDE [Concomitant]
     Active Substance: VALACYCLOVIR HYDROCHLORIDE
  45. VANCOMYCIN [Concomitant]
     Active Substance: VANCOMYCIN

REACTIONS (1)
  - Acute kidney injury [Unknown]
